FAERS Safety Report 17460734 (Version 1)
Quarter: 2020Q1

REPORT INFORMATION
  Report Type: Report from Study
  Country: GB (occurrence: GB)
  Receive Date: 20200226
  Receipt Date: 20200226
  Transmission Date: 20200409
  Serious: Yes (Other)
  Sender: FDA-Public Use
  Company Number: GB-SUN PHARMACEUTICAL INDUSTRIES LTD-2020R1-237863

PATIENT

DRUGS (1)
  1. DOXORUBICIN [Suspect]
     Active Substance: DOXORUBICIN
     Indication: SARCOMA
     Dosage: UNK
     Route: 065

REACTIONS (5)
  - Disease progression [Not Recovered/Not Resolved]
  - Fatigue [Unknown]
  - Mucosal inflammation [Unknown]
  - Rash [Unknown]
  - Thyroid disorder [Unknown]
